FAERS Safety Report 25846094 (Version 1)
Quarter: 2025Q3

REPORT INFORMATION
  Report Type: Spontaneous
  Country: EU (occurrence: EU)
  Receive Date: 20250925
  Receipt Date: 20250925
  Transmission Date: 20251021
  Serious: Yes (Other)
  Sender: RANBAXY
  Company Number: EU-SUN PHARMACEUTICAL INDUSTRIES LTD-2025RR-489190

PATIENT
  Age: 37 Year
  Sex: Female

DRUGS (6)
  1. IMATINIB [Suspect]
     Active Substance: IMATINIB
     Indication: Chronic myeloid leukaemia
     Route: 065
     Dates: start: 2018
  2. TASIGNA [Suspect]
     Active Substance: NILOTINIB
     Indication: Chronic myeloid leukaemia
     Route: 065
  3. TASIGNA [Suspect]
     Active Substance: NILOTINIB
     Route: 065
     Dates: start: 2020, end: 2021
  4. SCEMBLIX [Suspect]
     Active Substance: ASCIMINIB HYDROCHLORIDE
     Indication: Chronic myeloid leukaemia
     Dosage: 80 MILLIGRAM, DAILY
     Route: 065
     Dates: start: 202312
  5. INTERFERON BETA-1B [Suspect]
     Active Substance: INTERFERON BETA-1B
     Indication: Chronic myeloid leukaemia
     Route: 065
     Dates: start: 2020, end: 2021
  6. BOSUTINIB [Concomitant]
     Active Substance: BOSUTINIB
     Indication: Chronic myeloid leukaemia
     Route: 065

REACTIONS (9)
  - Thrombocytopenia [Unknown]
  - Rash erythematous [Unknown]
  - Renal colic [Unknown]
  - Leukocytosis [Unknown]
  - Splenomegaly [Unknown]
  - Drug ineffective [Unknown]
  - Pancytopenia [Unknown]
  - Treatment failure [Unknown]
  - Dyspepsia [Unknown]

NARRATIVE: CASE EVENT DATE: 20181201
